FAERS Safety Report 15480756 (Version 10)
Quarter: 2019Q4

REPORT INFORMATION
  Report Type: Report from Study
  Country: JP (occurrence: JP)
  Receive Date: 20181010
  Receipt Date: 20191121
  Transmission Date: 20200122
  Serious: Yes (Death, Hospitalization, Other)
  Sender: FDA-Public Use
  Company Number: PHJP2018JP017413

PATIENT
  Age: 18 Year
  Sex: Male

DRUGS (12)
  1. MEKINIST [Suspect]
     Active Substance: TRAMETINIB DIMETHYL SULFOXIDE
     Indication: HISTIOCYTIC SARCOMA
     Dosage: 2 MG, QD
     Route: 048
     Dates: start: 20170113, end: 20170127
  2. MEKINIST [Suspect]
     Active Substance: TRAMETINIB DIMETHYL SULFOXIDE
     Dosage: 2 MG, QD
     Route: 048
     Dates: start: 20170904, end: 20170910
  3. DEXAMETHASON [Concomitant]
     Active Substance: DEXAMETHASONE
     Indication: HISTIOCYTIC SARCOMA
     Dosage: UNK, ONCE/SINGLE
     Route: 065
     Dates: start: 20170428, end: 20170430
  4. CARBOPLATIN. [Concomitant]
     Active Substance: CARBOPLATIN
     Indication: HISTIOCYTIC SARCOMA
     Dosage: UNK, ONCE/SINGLE
     Route: 065
     Dates: start: 20170428, end: 20170428
  5. MEKINIST [Suspect]
     Active Substance: TRAMETINIB DIMETHYL SULFOXIDE
     Dosage: 0.5 MG, QD
     Route: 048
     Dates: start: 20170208, end: 20170413
  6. MEKINIST [Suspect]
     Active Substance: TRAMETINIB DIMETHYL SULFOXIDE
     Dosage: 1.5 MG, QD
     Route: 048
     Dates: start: 20170815, end: 20170903
  7. UROMITEXAN [Concomitant]
     Active Substance: MESNA
     Indication: HISTIOCYTIC SARCOMA
     Dosage: UNK, ONCE/SINGLE
     Route: 065
     Dates: start: 20170428, end: 20170430
  8. IFOSFAMIDE. [Concomitant]
     Active Substance: IFOSFAMIDE
     Indication: HISTIOCYTIC SARCOMA
     Dosage: UNK, ONCE/SINGLE
     Route: 065
     Dates: start: 20170428, end: 20170430
  9. MEKINIST [Suspect]
     Active Substance: TRAMETINIB DIMETHYL SULFOXIDE
     Dosage: 1.5 MG, QD
     Route: 048
     Dates: start: 20170206, end: 20170207
  10. MEKINIST [Suspect]
     Active Substance: TRAMETINIB DIMETHYL SULFOXIDE
     Dosage: 2 MG, QD
     Route: 048
     Dates: start: 20170525, end: 20170728
  11. MEKINIST [Suspect]
     Active Substance: TRAMETINIB DIMETHYL SULFOXIDE
     Dosage: 2 MG, QD
     Route: 048
     Dates: start: 20170913, end: 20171010
  12. ETOPOSIDE. [Concomitant]
     Active Substance: ETOPOSIDE
     Indication: HISTIOCYTIC SARCOMA
     Dosage: UNK, ONCE/SINGLE
     Route: 065
     Dates: start: 20170428, end: 20170430

REACTIONS (10)
  - Ileus [Fatal]
  - Malignant neoplasm progression [Not Recovered/Not Resolved]
  - Small intestinal perforation [Fatal]
  - Abdominal pain upper [Fatal]
  - Palmar-plantar erythrodysaesthesia syndrome [Not Recovered/Not Resolved]
  - Pyrexia [Recovered/Resolved]
  - Large intestinal haemorrhage [Fatal]
  - Hepatic function abnormal [Recovering/Resolving]
  - Dermatitis acneiform [Not Recovered/Not Resolved]
  - Histiocytic sarcoma [Not Recovered/Not Resolved]

NARRATIVE: CASE EVENT DATE: 20170127
